FAERS Safety Report 8046666-9 (Version None)
Quarter: 2012Q1

REPORT INFORMATION
  Report Type: 
  Country: None (occurrence: None)
  Receive Date: 20120115
  Receipt Date: 20111220
  Transmission Date: 20120608
  Serious: No
  Sender: FDA-Public Use
  Company Number: US-ROXANE LABORATORIES, INC.-2011-RO-01840RO

PATIENT
  Age: 74 Year
  Sex: Female

DRUGS (3)
  1. FLECAINIDE ACETATE [Suspect]
     Indication: ATRIAL FIBRILLATION
     Dosage: 200 MG
     Route: 048
     Dates: start: 20111207
  2. RESTOR [Concomitant]
  3. VITAMIN D [Concomitant]

REACTIONS (2)
  - PRODUCT TASTE ABNORMAL [None]
  - PRODUCT SOLUBILITY ABNORMAL [None]
